FAERS Safety Report 6043896-2 (Version None)
Quarter: 2009Q1

REPORT INFORMATION
  Report Type: 
  Country: None (occurrence: None)
  Receive Date: 20090120
  Receipt Date: 20090115
  Transmission Date: 20090719
  Serious: Yes (Death)
  Sender: FDA-Public Use
  Company Number: US-BRISTOL-MYERS SQUIBB COMPANY-14472898

PATIENT
  Age: 65 Year
  Sex: Female

DRUGS (8)
  1. BUSPIRONE HCL [Suspect]
     Route: 048
  2. OXYCODONE HCL [Suspect]
     Route: 048
  3. CLONAZEPAM [Suspect]
     Route: 048
  4. AMITRIPTYLINE HCL [Suspect]
     Route: 048
  5. CALCIUM ANTAGONIST [Suspect]
     Route: 048
  6. ANTIPSYCHOTIC [Suspect]
     Route: 048
  7. HYDROCHLOROTHIAZIDE [Suspect]
     Route: 048
  8. ANTIHISTAMINE NOS [Suspect]
     Route: 048

REACTIONS (1)
  - COMPLETED SUICIDE [None]
